FAERS Safety Report 7110061-7 (Version None)
Quarter: 2010Q4

REPORT INFORMATION
  Report Type: 
  Country: None (occurrence: None)
  Receive Date: 20101118
  Receipt Date: 20101103
  Transmission Date: 20110411
  Serious: Yes (Hospitalization)
  Sender: FDA-Public Use
  Company Number: NL-MEDIMMUNE-MEDI-0011768

PATIENT
  Sex: Female
  Weight: 7.92 kg

DRUGS (2)
  1. SYNAGIS [Suspect]
     Route: 051
     Dates: start: 20100907, end: 20101006
  2. SYNAGIS [Suspect]
     Route: 051
     Dates: start: 20101103, end: 20101103

REACTIONS (6)
  - DYSPNOEA [None]
  - NASOPHARYNGITIS [None]
  - OXYGEN SATURATION DECREASED [None]
  - PYREXIA [None]
  - RESPIRATORY TRACT INFECTION VIRAL [None]
  - USE OF ACCESSORY RESPIRATORY MUSCLES [None]
